FAERS Safety Report 6770252-1 (Version None)
Quarter: 2010Q2

REPORT INFORMATION
  Report Type: 
  Country: None (occurrence: None)
  Receive Date: 20100615
  Receipt Date: 20100518
  Transmission Date: 20101027
  Serious: Yes (Hospitalization)
  Sender: FDA-Public Use
  Company Number: DE-BRISTOL-MYERS SQUIBB COMPANY-15145196

PATIENT
  Age: 54 Year
  Sex: Male
  Weight: 83 kg

DRUGS (9)
  1. METFORMIN HCL [Suspect]
     Indication: TYPE 2 DIABETES MELLITUS
     Route: 048
     Dates: start: 20080701, end: 20100422
  2. ALLOPURINOL [Suspect]
     Indication: HYPERURICAEMIA
     Dosage: WAS ALSO TAKEN AT 300 MG
     Route: 048
     Dates: end: 20100423
  3. CRESTOR [Suspect]
     Indication: HYPERLIPIDAEMIA
     Route: 048
     Dates: start: 20091008, end: 20100423
  4. JANUMET [Suspect]
     Indication: TYPE 2 DIABETES MELLITUS
     Dosage: 1 DF = 50MG SITAGLIPTIN/1000MG METFORMNI HCL FILM COATED TABS
     Route: 048
     Dates: start: 20090101, end: 20100423
  5. ACTOS [Suspect]
     Indication: TYPE 2 DIABETES MELLITUS
     Dosage: TABS
     Route: 048
     Dates: start: 20090713, end: 20100423
  6. OMACOR [Suspect]
     Indication: HYPERTRIGLYCERIDAEMIA
     Dosage: CAPS SOFT
     Route: 048
     Dates: start: 20080701, end: 20100423
  7. RASILEZ [Suspect]
     Indication: HYPERTENSION
     Route: 048
     Dates: start: 20070101, end: 20100423
  8. RAMIPRIL [Concomitant]
     Indication: HYPERTENSION
     Dosage: FILM-COATED TABS 5MG/D- OCT05
     Route: 048
     Dates: start: 20070101, end: 20100423
  9. METOHEXAL SUCC [Concomitant]
     Indication: HYPERTENSION
     Dosage: PROLONGED RELEASE TABS 95MG
     Route: 048
     Dates: start: 20051001

REACTIONS (1)
  - LIVER INJURY [None]
